FAERS Safety Report 17553455 (Version 4)
Quarter: 2020Q2

REPORT INFORMATION
  Report Type: Spontaneous
  Country: ZA (occurrence: ZA)
  Receive Date: 20200318
  Receipt Date: 20200424
  Transmission Date: 20200713
  Serious: Yes (Other)
  Sender: FDA-Public Use
  Company Number: ZA-CIPLA LTD.-2020ZA01738

PATIENT

DRUGS (6)
  1. ESCITALOPRAM [Suspect]
     Active Substance: ESCITALOPRAM OXALATE
     Dosage: 20 MILLIGRAM, DAILY
     Route: 048
     Dates: start: 2020
  2. ESCITALOPRAM [Suspect]
     Active Substance: ESCITALOPRAM OXALATE
     Dosage: 40 MILLIGRAM, DAILY FOR A WEEK
     Route: 048
     Dates: start: 2020
  3. LITHIUM CARBONATE. [Concomitant]
     Active Substance: LITHIUM CARBONATE
     Indication: AFFECTIVE DISORDER
     Dosage: 400 MILLIGRAM, BID
     Route: 048
  4. ESCITALOPRAM [Suspect]
     Active Substance: ESCITALOPRAM OXALATE
     Indication: BIPOLAR DISORDER
     Dosage: 10 MILLIGRAM, A DAY
     Route: 048
  5. ESCITALOPRAM [Suspect]
     Active Substance: ESCITALOPRAM OXALATE
     Dosage: 20 MILLIGRAM, A DAY (10 MG SINGLE EVENING DOSE)
     Route: 048
     Dates: start: 201910
  6. ESCITALOPRAM [Suspect]
     Active Substance: ESCITALOPRAM OXALATE
     Indication: DEPRESSION
     Dosage: 15 MILLIGRAM, A DAY
     Route: 048

REACTIONS (5)
  - Accidental overdose [Unknown]
  - Withdrawal syndrome [Unknown]
  - Otitis media [Not Recovered/Not Resolved]
  - Panic attack [Unknown]
  - Dizziness [Unknown]

NARRATIVE: CASE EVENT DATE: 2020
